FAERS Safety Report 6842740-0 (Version None)
Quarter: 2010Q3

REPORT INFORMATION
  Report Type: 
  Country: None (occurrence: None)
  Receive Date: 20100714
  Receipt Date: 20071024
  Transmission Date: 20110219
  Serious: Yes (Other)
  Sender: FDA-Public Use
  Company Number: US-PFIZER INC-2007064159

PATIENT
  Sex: Female
  Weight: 68.5 kg

DRUGS (10)
  1. CHANTIX [Suspect]
     Indication: TOBACCO ABUSE
     Dates: start: 20070717, end: 20070826
  2. ZOLOFT [Concomitant]
  3. ZANAFLEX [Concomitant]
  4. LIPITOR [Concomitant]
  5. TRAZODONE HYDROCHLORIDE [Concomitant]
  6. ATENOLOL [Concomitant]
  7. PRILOSEC [Concomitant]
  8. DARVOCET-N 100 [Concomitant]
  9. IMITREX [Concomitant]
  10. PERI-COLACE [Concomitant]

REACTIONS (7)
  - DECREASED APPETITE [None]
  - FATIGUE [None]
  - HEADACHE [None]
  - HYPERSOMNIA [None]
  - MALAISE [None]
  - MYALGIA [None]
  - NAUSEA [None]
